FAERS Safety Report 6708441-4 (Version None)
Quarter: 2010Q2

REPORT INFORMATION
  Report Type: 
  Country: None (occurrence: None)
  Receive Date: 20100503
  Receipt Date: 20090722
  Transmission Date: 20101027
  Serious: No
  Sender: FDA-Public Use
  Company Number: US-ASTRAZENECA-2009UW14613

PATIENT
  Age: 68 Year
  Sex: Female
  Weight: 71.7 kg

DRUGS (2)
  1. NEXIUM [Suspect]
     Indication: GASTROOESOPHAGEAL REFLUX DISEASE
     Route: 048
     Dates: start: 20090101
  2. FERROUS SULFATE TAB [Concomitant]
     Indication: ANAEMIA

REACTIONS (1)
  - ABDOMINAL PAIN UPPER [None]
